FAERS Safety Report 6339857-6 (Version None)
Quarter: 2009Q3

REPORT INFORMATION
  Report Type: 
  Country: None (occurrence: None)
  Receive Date: 20090903
  Receipt Date: 20090826
  Transmission Date: 20100115
  Serious: Yes (Other)
  Sender: FDA-Public Use
  Company Number: PHHY2008GB16001

PATIENT
  Sex: Male

DRUGS (4)
  1. CLOZARIL [Suspect]
     Indication: SCHIZOPHRENIA
     Dosage: 375 MG, DAILY
     Route: 048
     Dates: start: 20071112
  2. FLUOXETINE [Concomitant]
     Dosage: 40 MG DAILY
     Route: 048
     Dates: start: 20070301
  3. SULPIRIDE [Concomitant]
     Dosage: 200 MG DAILY
     Route: 048
     Dates: start: 20080625
  4. HYOSCINE HBR HYT [Concomitant]
     Dosage: 300 MG DAILY
     Route: 048
     Dates: start: 20071204

REACTIONS (11)
  - ANGINA PECTORIS [None]
  - CHEST PAIN [None]
  - DIZZINESS [None]
  - ELECTROCARDIOGRAM T WAVE ABNORMAL [None]
  - ELECTROCARDIOGRAM T WAVE INVERSION [None]
  - GAIT DISTURBANCE [None]
  - HALLUCINATION [None]
  - LOSS OF CONSCIOUSNESS [None]
  - MYOCARDIAL ISCHAEMIA [None]
  - SYNCOPE [None]
  - VENTRICULAR EXTRASYSTOLES [None]
